FAERS Safety Report 8876257 (Version 4)
Quarter: 2013Q1

REPORT INFORMATION
  Report Type: Report from Study
  Country: JP (occurrence: JP)
  Receive Date: 20121031
  Receipt Date: 20130325
  Transmission Date: 20140127
  Serious: Yes (Hospitalization)
  Sender: FDA-Public Use
  Company Number: JP-009507513-1210JPN011287

PATIENT
  Age: 76 Year
  Sex: Female
  Weight: 38 kg

DRUGS (9)
  1. PEGINTRON [Suspect]
     Indication: CHRONIC HEPATITIS C
     Dosage: 60 MICROGRAM, QW
     Route: 058
     Dates: start: 20120816, end: 20120830
  2. REBETOL [Suspect]
     Indication: CHRONIC HEPATITIS C
     Dosage: 400 MG, QD
     Route: 048
     Dates: start: 20120816, end: 20120906
  3. TELAVIC [Suspect]
     Indication: CHRONIC HEPATITIS C
     Dosage: 1500 MG, QD, CUMULATIVE DOSE 12000 MG
     Route: 048
     Dates: start: 20120816, end: 20120906
  4. URSODIOL [Concomitant]
     Indication: CHRONIC HEPATITIS C
     Dosage: 600 MG, UNK, QD, FORMULATION: POR (UNSPECIFIED)
     Route: 048
     Dates: end: 20120912
  5. OLMETEC [Concomitant]
     Indication: HYPERTENSION
     Dosage: 20 MG, UNK, QD
     Route: 048
  6. LENDORMIN D [Concomitant]
     Indication: INSOMNIA
     Dosage: 0.25 MG, UNK
     Route: 048
  7. LOXONIN [Concomitant]
     Indication: PROPHYLAXIS
     Dosage: 60 MG, QD
     Route: 048
     Dates: end: 20120830
  8. MUCOSTA [Concomitant]
     Indication: PROPHYLAXIS
     Dosage: 100 MG, UNK
     Route: 048
     Dates: end: 20120830
  9. RINDERON-VG [Concomitant]
     Indication: RASH
     Dosage: 10 G, QD
     Route: 048
     Dates: end: 20120920

REACTIONS (4)
  - Epistaxis [Recovered/Resolved]
  - Contusion [Recovering/Resolving]
  - Crush injury [Recovering/Resolving]
  - Fall [Recovering/Resolving]
